FAERS Safety Report 7668274-1 (Version None)
Quarter: 2011Q3

REPORT INFORMATION
  Report Type: 
  Country: None (occurrence: None)
  Receive Date: 20110808
  Receipt Date: 20110726
  Transmission Date: 20111222
  Serious: Yes (Death)
  Sender: FDA-Public Use
  Company Number: US-UCBSA-036807

PATIENT
  Sex: Female

DRUGS (1)
  1. KEPPRA XR [Suspect]

REACTIONS (2)
  - PARKINSON'S DISEASE [None]
  - PNEUMONIA ASPIRATION [None]
